FAERS Safety Report 21167180 (Version 1)
Quarter: 2022Q3

REPORT INFORMATION
  Report Type: Spontaneous
  Country: US (occurrence: None)
  Receive Date: 20220803
  Receipt Date: 20220803
  Transmission Date: 20221027
  Serious: Yes (Hospitalization)
  Sender: FDA-Public Use
  Company Number: None

PATIENT
  Sex: Male
  Weight: 107.4 kg

DRUGS (6)
  1. CYCLOPHOSPHAMIDE [Suspect]
     Active Substance: CYCLOPHOSPHAMIDE
     Dates: end: 20171211
  2. CYTARABINE [Suspect]
     Active Substance: CYTARABINE
     Dates: end: 20171221
  3. DAUNORUBICIN [Suspect]
     Active Substance: DAUNORUBICIN
     Dates: end: 20171127
  4. MERCAPTOPURINE [Suspect]
     Active Substance: MERCAPTOPURINE
     Dates: end: 20180112
  5. METHOTREXATE [Suspect]
     Active Substance: METHOTREXATE
     Dates: end: 20171218
  6. VINCRISTINE SULFATE [Suspect]
     Active Substance: VINCRISTINE SULFATE
     Dates: end: 20171127

REACTIONS (3)
  - Headache [None]
  - Subdural haematoma [None]
  - Subdural haemorrhage [None]

NARRATIVE: CASE EVENT DATE: 20171225
